FAERS Safety Report 10084486 (Version 1)
Quarter: 2014Q2

REPORT INFORMATION
  Report Type: Spontaneous
  Country: US (occurrence: US)
  Receive Date: 20140417
  Receipt Date: 20140417
  Transmission Date: 20141212
  Serious: Yes (Death)
  Sender: FDA-Public Use
  Company Number: US-PURDUE-USA-2014-0113042

PATIENT
  Age: 54 Year
  Sex: Female

DRUGS (1)
  1. OXYCONTIN (NDA 22-272) [Suspect]
     Indication: ARTHRITIS
     Dosage: 40 MG, SEE TEXT
     Route: 048
     Dates: start: 201403, end: 201403

REACTIONS (1)
  - Death [Fatal]
